FAERS Safety Report 23309786 (Version 1)
Quarter: 2023Q4

REPORT INFORMATION
  Report Type: Spontaneous
  Country: RU (occurrence: RU)
  Receive Date: 20231218
  Receipt Date: 20231218
  Transmission Date: 20240109
  Serious: Yes (Other)
  Sender: FDA-Public Use
  Company Number: RU-SANDOZ-SDZ2023RU067997

PATIENT
  Sex: Female

DRUGS (6)
  1. ACLASTA [Suspect]
     Active Substance: ZOLEDRONIC ACID
     Indication: Osteoporosis
     Dosage: UNK
     Route: 065
     Dates: start: 20231204
  2. CALCIUM D3 NYCOMED [Concomitant]
     Indication: Product used for unknown indication
     Dosage: 2 TAB. PER DAY
     Route: 065
  3. Detrimax vitamin d3 [Concomitant]
     Indication: Product used for unknown indication
     Dosage: 2000 UNK, QD
     Route: 065
  4. METFORMIN [Concomitant]
     Active Substance: METFORMIN HYDROCHLORIDE
     Indication: Glucose tolerance impaired
     Route: 065
  5. SOTALOL [Concomitant]
     Active Substance: SOTALOL
     Indication: Atrial fibrillation
     Dosage: 80 MG, QD
     Route: 065
  6. XARELTO [Concomitant]
     Active Substance: RIVAROXABAN
     Indication: Atrial fibrillation
     Route: 065

REACTIONS (10)
  - Blindness transient [Recovering/Resolving]
  - Atrial fibrillation [Recovering/Resolving]
  - Lacrimation increased [Recovering/Resolving]
  - Eye movement disorder [Recovering/Resolving]
  - Glucose tolerance impaired [Unknown]
  - Tremor [Recovering/Resolving]
  - Chills [Recovering/Resolving]
  - Pain [Recovering/Resolving]
  - Eye pain [Recovering/Resolving]
  - Headache [Recovering/Resolving]

NARRATIVE: CASE EVENT DATE: 20231208
